FAERS Safety Report 8775928 (Version 1)
Quarter: 2012Q4

REPORT INFORMATION
  Report Type: 
  Country: BE (occurrence: BE)
  Receive Date: 20120910
  Receipt Date: 20120910
  Transmission Date: 20130627
  Serious: Yes (Congenital Anomaly)
  Sender: FDA-Public Use
  Company Number: BE-TEVA-356929ISR

PATIENT
  Sex: Female

DRUGS (1)
  1. TAMOXIFEN [Suspect]
     Route: 064

REACTIONS (4)
  - Sex chromosome abnormality [Unknown]
  - Enlarged clitoris [Unknown]
  - Labia enlarged [Unknown]
  - Pregnancy [Recovered/Resolved]
